FAERS Safety Report 11005192 (Version 1)
Quarter: 2015Q2

REPORT INFORMATION
  Report Type: Spontaneous
  Country: US (occurrence: None)
  Receive Date: 20150408
  Receipt Date: 20150408
  Transmission Date: 20150821
  Serious: Yes (Hospitalization)
  Sender: FDA-Public Use
  Company Number: None

PATIENT
  Age: 42 Year
  Sex: Female

DRUGS (1)
  1. VELCADE [Suspect]
     Active Substance: BORTEZOMIB
     Indication: PLASMA CELL MYELOMA
     Dates: start: 20140213, end: 20140320

REACTIONS (6)
  - Condition aggravated [None]
  - Jaundice [None]
  - Hepatic failure [None]
  - Cholestasis [None]
  - Drug-induced liver injury [None]
  - Hepatic cyst [None]

NARRATIVE: CASE EVENT DATE: 20140320
